FAERS Safety Report 7650923-5 (Version None)
Quarter: 2011Q3

REPORT INFORMATION
  Report Type: 
  Country: None (occurrence: None)
  Receive Date: 20110802
  Receipt Date: 20110726
  Transmission Date: 20111222
  Serious: Yes (Other)
  Sender: FDA-Public Use
  Company Number: US-BAYER-2011-065411

PATIENT
  Sex: Female

DRUGS (1)
  1. CLIMARA PRO [Suspect]

REACTIONS (3)
  - HOT FLUSH [None]
  - MIDDLE INSOMNIA [None]
  - SKIN CANCER [None]
